FAERS Safety Report 24082689 (Version 1)
Quarter: 2024Q3

REPORT INFORMATION
  Report Type: Spontaneous
  Country: GB (occurrence: GB)
  Receive Date: 20240712
  Receipt Date: 20240712
  Transmission Date: 20241016
  Serious: Yes (Hospitalization)
  Sender: TEVA
  Company Number: None

PATIENT

DRUGS (4)
  1. RAMIPRIL [Suspect]
     Active Substance: RAMIPRIL
  2. BISOPROLOL [Suspect]
     Active Substance: BISOPROLOL\BISOPROLOL FUMARATE
  3. FUROSEMIDE [Suspect]
     Active Substance: FUROSEMIDE
  4. DIGOXIN [Suspect]
     Active Substance: DIGOXIN

REACTIONS (1)
  - Fall [Recovering/Resolving]
